FAERS Safety Report 20418638 (Version 1)
Quarter: 2022Q1

REPORT INFORMATION
  Report Type: Spontaneous
  Country: US (occurrence: US)
  Receive Date: 20220202
  Receipt Date: 20220202
  Transmission Date: 20220424
  Serious: No
  Sender: FDA-Public Use
  Company Number: US-SA-SAC20220129000022

PATIENT
  Age: 46 Year
  Sex: Male

DRUGS (1)
  1. DUPIXENT [Suspect]
     Active Substance: DUPILUMAB
     Dosage: 300 MG, FREQUENCY OTHER
     Route: 058
     Dates: start: 202107, end: 202111

REACTIONS (1)
  - Therapy cessation [Unknown]

NARRATIVE: CASE EVENT DATE: 20211101
